FAERS Safety Report 4930668-2 (Version None)
Quarter: 2006Q1

REPORT INFORMATION
  Report Type: 
  Country: None (occurrence: None)
  Receive Date: 20060227
  Receipt Date: 20060214
  Transmission Date: 20060701
  Serious: Yes (Death)
  Sender: FDA-Public Use
  Company Number: 2006021722

PATIENT
  Sex: Male
  Weight: 90.7194 kg

DRUGS (1)
  1. NICOTINE [Suspect]
     Indication: SMOKING CESSATION THERAPY
     Dosage: TRANSDERMAL
     Route: 062

REACTIONS (3)
  - DRUG TOXICITY [None]
  - FALL [None]
  - TREATMENT NONCOMPLIANCE [None]
